FAERS Safety Report 7286723-8 (Version None)
Quarter: 2011Q1

REPORT INFORMATION
  Report Type: 
  Country: None (occurrence: None)
  Receive Date: 20110210
  Receipt Date: 20110204
  Transmission Date: 20110831
  Serious: Yes (Other)
  Sender: FDA-Public Use
  Company Number: JP-PFIZER INC-2011022300

PATIENT
  Age: 87 Year
  Sex: Female

DRUGS (5)
  1. MORPHINE HYDROCHLORIDE [Concomitant]
     Dosage: UNK
     Dates: start: 20101201
  2. MYSLEE [Concomitant]
     Dosage: UNK
     Dates: start: 20101201
  3. CELECOXIB [Concomitant]
     Dosage: UNK
     Dates: start: 20101201
  4. GABAPEN [Suspect]
     Indication: ANALGESIC THERAPY
     Dosage: 200MG/DAY
     Route: 048
     Dates: start: 20101201, end: 20110131
  5. BETAMETHASONE [Concomitant]
     Dosage: UNK
     Dates: start: 20101201

REACTIONS (2)
  - HYPERAMMONAEMIA [None]
  - LOSS OF CONSCIOUSNESS [None]
